FAERS Safety Report 10610174 (Version 1)
Quarter: 2014Q4

REPORT INFORMATION
  Report Type: Spontaneous
  Country: US (occurrence: US)
  Receive Date: 20141126
  Receipt Date: 20141126
  Transmission Date: 20150529
  Serious: Yes (Hospitalization, Other)
  Sender: FDA-Public Use
  Company Number: US-MALLINCKRODT-T201305208

PATIENT
  Sex: Male

DRUGS (2)
  1. GABLOFEN [Suspect]
     Active Substance: BACLOFEN
     Dosage: 300 MCG BOLUS
     Route: 037
  2. GABLOFEN [Suspect]
     Active Substance: BACLOFEN
     Indication: MUSCLE SPASTICITY
     Dosage: 1018.8 MCG/DAY
     Route: 037

REACTIONS (8)
  - Muscle spasticity [Unknown]
  - Drug withdrawal syndrome [Recovering/Resolving]
  - Clostridium difficile infection [Unknown]
  - Rhabdomyolysis [Unknown]
  - Urinary tract infection [Unknown]
  - Pyrexia [Unknown]
  - Agitation [Unknown]
  - Hypertonia [Unknown]
